FAERS Safety Report 10516416 (Version 2)
Quarter: 2015Q2

REPORT INFORMATION
  Report Type: Spontaneous
  Country: US (occurrence: US)
  Receive Date: 20141014
  Receipt Date: 20150410
  Transmission Date: 20150821
  Serious: Yes (Hospitalization)
  Sender: FDA-Public Use
  Company Number: US-BAYER-2014-150529

PATIENT
  Age: 26 Year
  Sex: Female
  Weight: 117.91 kg

DRUGS (1)
  1. MIRENA [Suspect]
     Active Substance: LEVONORGESTREL
     Indication: CONTRACEPTION
     Dosage: 20 MCG/24HR, CONT
     Route: 015
     Dates: start: 20100406, end: 20121010

REACTIONS (16)
  - Embedded device [Not Recovered/Not Resolved]
  - Infection [None]
  - Hypoaesthesia [None]
  - Cyst [None]
  - Menorrhagia [None]
  - Anxiety [None]
  - Pelvic adhesions [None]
  - Hysterectomy [None]
  - Complication of pregnancy [None]
  - Injury [Not Recovered/Not Resolved]
  - Abdominal pain [Not Recovered/Not Resolved]
  - Pelvic organ injury [Not Recovered/Not Resolved]
  - Emotional distress [None]
  - Depression [None]
  - Stress [None]
  - Dyspnoea [None]

NARRATIVE: CASE EVENT DATE: 20121010
